FAERS Safety Report 11794235 (Version 1)
Quarter: 2015Q4

REPORT INFORMATION
  Report Type: Spontaneous
  Country: CN (occurrence: CN)
  Receive Date: 20151202
  Receipt Date: 20151202
  Transmission Date: 20160305
  Serious: Yes (Other)
  Sender: FDA-Public Use
  Company Number: PHHY2015CN156372

PATIENT
  Age: 63 Year
  Sex: Male

DRUGS (1)
  1. CEFUROXIME. [Suspect]
     Active Substance: CEFUROXIME
     Indication: LENS EXTRACTION
     Route: 065

REACTIONS (2)
  - Macular oedema [Recovered/Resolved]
  - Retinal detachment [Recovered/Resolved]
